FAERS Safety Report 12072630 (Version 1)
Quarter: 2016Q1

REPORT INFORMATION
  Report Type: Spontaneous
  Country: US (occurrence: None)
  Receive Date: 20160211
  Receipt Date: 20160211
  Transmission Date: 20160526
  Serious: No
  Sender: FDA-Public Use
  Company Number: None

PATIENT
  Age: 8 Year
  Sex: Male
  Weight: 25.86 kg

DRUGS (3)
  1. ZYRTEC [Concomitant]
     Active Substance: CETIRIZINE HYDROCHLORIDE
  2. GUANFACINE ER 3MG [Suspect]
     Active Substance: GUANFACINE
     Indication: ATTENTION DEFICIT/HYPERACTIVITY DISORDER
     Route: 048
     Dates: start: 20151026
  3. GUANFACINE ER 3MG [Suspect]
     Active Substance: GUANFACINE
     Indication: OPPOSITIONAL DEFIANT DISORDER
     Route: 048
     Dates: start: 20151026

REACTIONS (4)
  - Abdominal discomfort [None]
  - Product substitution issue [None]
  - Insomnia [None]
  - Somnolence [None]

NARRATIVE: CASE EVENT DATE: 20151026
